FAERS Safety Report 17520518 (Version 3)
Quarter: 2020Q1

REPORT INFORMATION
  Report Type: Spontaneous
  Country: CO (occurrence: CO)
  Receive Date: 20200309
  Receipt Date: 20200323
  Transmission Date: 20200409
  Serious: Yes (Hospitalization)
  Sender: FDA-Public Use
  Company Number: CO-BIOMARINAP-CO-2020-128913

PATIENT
  Age: 6 Year
  Sex: Male
  Weight: 13 kg

DRUGS (5)
  1. VIMIZIM [Suspect]
     Active Substance: ELOSULFASE ALFA
     Indication: MUCOPOLYSACCHARIDOSIS IV
     Dosage: 28 MILLIGRAM, QW
     Route: 042
     Dates: start: 20180212
  2. TRAMADOL. [Concomitant]
     Active Substance: TRAMADOL
     Indication: DYSBIOSIS
  3. RANITIDINE. [Concomitant]
     Active Substance: RANITIDINE
     Indication: DYSBIOSIS
  4. DIPYRONE [Concomitant]
     Active Substance: DIPYRONE
     Indication: DYSBIOSIS
  5. MORPHINE [Concomitant]
     Active Substance: MORPHINE
     Indication: DYSBIOSIS

REACTIONS (3)
  - Scoliosis surgery [Recovering/Resolving]
  - Pain [Unknown]
  - Product dose omission [Unknown]

NARRATIVE: CASE EVENT DATE: 20200302
